FAERS Safety Report 20419181 (Version 2)
Quarter: 2022Q1

REPORT INFORMATION
  Report Type: Report from Study
  Country: US (occurrence: US)
  Receive Date: 20220203
  Receipt Date: 20220324
  Transmission Date: 20220423
  Serious: Yes (Other)
  Sender: FDA-Public Use
  Company Number: US-BIOVITRUM-2022US01186

PATIENT
  Age: 74 Year
  Sex: Female

DRUGS (1)
  1. KINERET [Suspect]
     Active Substance: ANAKINRA
     Indication: Plasma cell myeloma
     Route: 058
     Dates: start: 20211126

REACTIONS (6)
  - Neuropathy peripheral [Unknown]
  - Herpes zoster [Unknown]
  - Pain [Unknown]
  - Unevaluable event [Unknown]
  - Product dose omission issue [Unknown]
  - Off label use [Unknown]

NARRATIVE: CASE EVENT DATE: 20211126
